FAERS Safety Report 4422807-7 (Version None)
Quarter: 2004Q3

REPORT INFORMATION
  Report Type: 
  Country: None (occurrence: None)
  Receive Date: 20040811
  Receipt Date: 20040803
  Transmission Date: 20050211
  Serious: Yes (Hospitalization)
  Sender: FDA-Public Use
  Company Number: PHNU2004DE02751

PATIENT
  Sex: Female

DRUGS (1)
  1. LAMISIL [Suspect]
     Indication: TRICHOPHYTON INFECTION
     Dosage: 250 MG, QD
     Route: 048
     Dates: start: 20040101, end: 20040601

REACTIONS (1)
  - CUTANEOUS LUPUS ERYTHEMATOSUS [None]
